FAERS Safety Report 10249972 (Version 1)
Quarter: 2014Q2

REPORT INFORMATION
  Report Type: Spontaneous
  Country: US (occurrence: None)
  Receive Date: 20140618
  Receipt Date: 20140618
  Transmission Date: 20141212
  Serious: Yes (Life-Threatening, Other)
  Sender: FDA-Public Use
  Company Number: None

PATIENT
  Age: 14 Year
  Sex: Female
  Weight: 54.43 kg

DRUGS (2)
  1. FLUOXETINE [Suspect]
     Indication: ANXIETY
     Route: 048
  2. FLUOXETINE [Suspect]
     Indication: DEPRESSION
     Route: 048

REACTIONS (3)
  - Hallucination, visual [None]
  - Choking [None]
  - Self injurious behaviour [None]
